FAERS Safety Report 4510868-6 (Version None)
Quarter: 2004Q4

REPORT INFORMATION
  Report Type: 
  Country: None (occurrence: None)
  Receive Date: 20041124
  Receipt Date: 20041115
  Transmission Date: 20050328
  Serious: Yes (Life-Threatening, Hospitalization, Disabling)
  Sender: FDA-Public Use
  Company Number: US-MERCK-0411USA02671

PATIENT
  Sex: Female

DRUGS (7)
  1. VIOXX [Suspect]
     Indication: ARTHRITIS
     Route: 048
     Dates: start: 20000713
  2. HYDROCORTISONE [Concomitant]
     Route: 065
  3. [THERAPY UNSPECIFIED] [Concomitant]
     Route: 065
  4. COUMADIN [Concomitant]
     Route: 065
  5. ZOCOR [Concomitant]
     Route: 065
  6. PREMPRO [Concomitant]
     Route: 065
  7. FURO [Concomitant]
     Route: 065

REACTIONS (4)
  - CEREBROVASCULAR ACCIDENT [None]
  - DIFFICULTY IN WALKING [None]
  - INTESTINAL FUNCTIONAL DISORDER [None]
  - SPEECH DISORDER [None]
